FAERS Safety Report 4661706-2 (Version None)
Quarter: 2005Q2

REPORT INFORMATION
  Report Type: 
  Country: None (occurrence: None)
  Receive Date: 20050512
  Receipt Date: 20050512
  Transmission Date: 20051028
  Serious: No
  Sender: FDA-Public Use
  Company Number: None

PATIENT
  Sex: Female
  Weight: 76 kg

DRUGS (3)
  1. CISPLATIN [Suspect]
     Dosage: 40 MG /M2
     Dates: start: 20050308
  2. AMIFOSTINE [Suspect]
     Dosage: 500 MG SQ
     Route: 058
  3. RADIATION TREATMENT [Suspect]

REACTIONS (3)
  - INFECTION [None]
  - PROCEDURAL COMPLICATION [None]
  - PYOMETRA [None]
